FAERS Safety Report 10770407 (Version 1)
Quarter: 2015Q1

REPORT INFORMATION
  Report Type: Other
  Country: US (occurrence: US)
  Receive Date: 20150206
  Receipt Date: 20150206
  Transmission Date: 20150721
  Serious: Yes (Death)
  Sender: FDA-Public Use
  Company Number: US-FRI-1000074218

PATIENT
  Age: 42 Year
  Sex: Male

DRUGS (5)
  1. LITHIUM [Suspect]
     Active Substance: LITHIUM CARBONATE
  2. ETHYLENE GLYCOL (ANTIFREEZE) [Suspect]
     Active Substance: ETHYLENE GLYCOL
  3. ZIPRASIDONE [Suspect]
     Active Substance: ZIPRASIDONE
  4. LEVOTHROID [Suspect]
     Active Substance: LEVOTHYROXINE SODIUM
  5. LAMOTRIGINE. [Suspect]
     Active Substance: LAMOTRIGINE

REACTIONS (1)
  - Completed suicide [Fatal]
